FAERS Safety Report 24627701 (Version 1)
Quarter: 2024Q4

REPORT INFORMATION
  Report Type: Spontaneous
  Country: JP (occurrence: JP)
  Receive Date: 20241116
  Receipt Date: 20241116
  Transmission Date: 20250114
  Serious: Yes (Hospitalization, Other)
  Sender: ALEXION PHARMACEUTICALS
  Company Number: JP-ASTRAZENECA-240122138_013020_P_1

PATIENT

DRUGS (5)
  1. OSIMERTINIB [Suspect]
     Active Substance: OSIMERTINIB
     Indication: Non-small cell lung cancer
     Dosage: 40 MILLIGRAM, QD
  2. OSIMERTINIB [Suspect]
     Active Substance: OSIMERTINIB
     Dosage: 40 MILLIGRAM
  3. CASODEX [Suspect]
     Active Substance: BICALUTAMIDE
     Indication: Prostate cancer
     Dosage: 80 MILLIGRAM, QD
  4. LOSARTAN [Concomitant]
     Active Substance: LOSARTAN
     Dosage: DOSE UNKNOWN
     Route: 065
  5. ANTICOAGULANTE ACD [Concomitant]
     Dosage: DOSE UNKNOWN
     Route: 065

REACTIONS (5)
  - Renal impairment [Unknown]
  - Parkinson^s disease [Unknown]
  - Diverticulum intestinal haemorrhagic [Unknown]
  - Rash [Unknown]
  - Drug ineffective [Unknown]
